FAERS Safety Report 6864000-4 (Version None)
Quarter: 2010Q3

REPORT INFORMATION
  Report Type: 
  Country: None (occurrence: None)
  Receive Date: 20100721
  Receipt Date: 20080527
  Transmission Date: 20110219
  Serious: No
  Sender: FDA-Public Use
  Company Number: US-PFIZER INC-2008021897

PATIENT
  Sex: Female
  Weight: 84.1 kg

DRUGS (16)
  1. CHANTIX [Suspect]
     Indication: SMOKING CESSATION THERAPY
     Dates: start: 20080225
  2. LIPITOR [Suspect]
  3. INSULIN [Concomitant]
  4. METFORMIN [Concomitant]
  5. ACTOS [Concomitant]
  6. ZYRTEC [Concomitant]
  7. ALTACE [Concomitant]
  8. CRESTOR [Concomitant]
  9. EFFEXOR XR [Concomitant]
  10. NEXIUM [Concomitant]
  11. ACETYLSALICYLIC ACID [Concomitant]
  12. KLONOPIN [Concomitant]
  13. PROZAC [Concomitant]
  14. FLONASE [Concomitant]
  15. VITAMIN B-12 [Concomitant]
  16. HERBAL NOS/MINERALS NOS [Concomitant]

REACTIONS (9)
  - ABDOMINAL DISCOMFORT [None]
  - ANXIETY [None]
  - BLOOD GLUCOSE INCREASED [None]
  - INSOMNIA [None]
  - MALAISE [None]
  - MUSCLE SPASMS [None]
  - NAUSEA [None]
  - PAIN IN EXTREMITY [None]
  - VOMITING [None]
